FAERS Safety Report 5411697-1 (Version None)
Quarter: 2007Q3

REPORT INFORMATION
  Report Type: 
  Country: None (occurrence: None)
  Receive Date: 20070810
  Receipt Date: 20070803
  Transmission Date: 20080115
  Serious: Yes (Other)
  Sender: FDA-Public Use
  Company Number: JP-PFIZER INC-2007065660

PATIENT
  Age: 45 Year
  Sex: Male

DRUGS (1)
  1. ATARAX [Suspect]
     Indication: PAIN

REACTIONS (1)
  - PANCREATIC ENLARGEMENT [None]
